FAERS Safety Report 8554523 (Version 2)
Quarter: 2025Q4

REPORT INFORMATION
  Report Type: Spontaneous
  Country: US (occurrence: US)
  Receive Date: 20120509
  Receipt Date: 20251103
  Transmission Date: 20260118
  Serious: Yes (Other)
  Sender: MYLAN
  Company Number: US-PFIZER INC-2012109313

PATIENT
  Sex: Female
  Weight: 74.83 kg

DRUGS (5)
  1. NEURONTIN [Suspect]
     Active Substance: GABAPENTIN
     Indication: Hot flush
     Dosage: UNK
  2. NEURONTIN [Suspect]
     Active Substance: GABAPENTIN
     Indication: Breast cancer female
     Dosage: 300 MILLIGRAM
  3. NEURONTIN [Suspect]
     Active Substance: GABAPENTIN
     Dosage: 1200 MILLIGRAM, TID (THREE TIMES A DAY)
     Dates: start: 2010, end: 201107
  4. SYNTHROID [Concomitant]
     Active Substance: LEVOTHYROXINE SODIUM
     Indication: Hypothyroidism
     Dosage: 50 MICROGRAM
  5. SYNTHROID [Concomitant]
     Active Substance: LEVOTHYROXINE SODIUM
     Dosage: 100 MICROGRAM

REACTIONS (11)
  - Cognitive disorder [Recovered/Resolved]
  - Suicidal ideation [Recovered/Resolved]
  - Depression [Recovered/Resolved]
  - Frustration tolerance decreased [Recovered/Resolved]
  - Impaired work ability [Recovered/Resolved]
  - Confusional state [Recovered/Resolved]
  - Crying [Recovered/Resolved]
  - Hot flush [Recovered/Resolved]
  - Feeling abnormal [Unknown]
  - Amnesia [Unknown]
  - Drug ineffective [Unknown]

NARRATIVE: CASE EVENT DATE: 20100101
